FAERS Safety Report 4304306-6 (Version None)
Quarter: 2004Q1

REPORT INFORMATION
  Report Type: 
  Country: None (occurrence: None)
  Receive Date: 20040225
  Receipt Date: 20040211
  Transmission Date: 20041129
  Serious: Yes (Death, Hospitalization, Other)
  Sender: FDA-Public Use
  Company Number: USA-2003-0010586

PATIENT
  Age: 52 Year
  Sex: Male

DRUGS (11)
  1. OXYCONTIN [Suspect]
     Indication: PAIN
     Dosage: SEE IMAGE
     Route: 048
  2. VICODIN [Concomitant]
  3. REMERON [Concomitant]
  4. SOMA [Concomitant]
  5. XANAX [Concomitant]
  6. PERCOGESIC (PHENYLOXAMINE CITRATE) [Concomitant]
  7. TYLENOL (CAPLET) [Concomitant]
  8. PRILOSEC (OMEPRAZOLE) ` [Concomitant]
  9. ASCRIPTIN (ALUMINIUM HYDROXIDE,MAGNESIUM HYDROXIDE) [Concomitant]
  10. PLAVIX [Concomitant]
  11. NITRO PATCH (GLYCERYL TRINITRATE) [Concomitant]

REACTIONS (23)
  - ANXIETY [None]
  - BACK PAIN [None]
  - CARDIOMEGALY [None]
  - CHRONIC OBSTRUCTIVE AIRWAYS DISEASE [None]
  - CORONARY ARTERY ATHEROSCLEROSIS [None]
  - CORONARY ARTERY DISEASE [None]
  - DEPRESSION [None]
  - DIFFICULTY IN WALKING [None]
  - DRUG ABUSER [None]
  - DRUG DEPENDENCE [None]
  - DRUG SCREEN POSITIVE [None]
  - EMOTIONAL DISTRESS [None]
  - FALL [None]
  - FALSE POSITIVE LABORATORY RESULT [None]
  - HYPOAESTHESIA [None]
  - INSOMNIA [None]
  - NIGHT SWEATS [None]
  - OBESITY [None]
  - OVERDOSE [None]
  - PAIN [None]
  - PARAESTHESIA [None]
  - PNEUMONIA [None]
  - TROPONIN INCREASED [None]
